FAERS Safety Report 22021721 (Version 1)
Quarter: 2023Q1

REPORT INFORMATION
  Report Type: Spontaneous
  Country: US (occurrence: None)
  Receive Date: 20230218
  Receipt Date: 20230218
  Transmission Date: 20230417
  Serious: Yes (Life-Threatening, Hospitalization, Other)
  Sender: FDA-Public Use
  Company Number: None

PATIENT
  Age: 52 Year
  Sex: Female
  Weight: 87.75 kg

DRUGS (10)
  1. EMGALITY [Suspect]
     Active Substance: GALCANEZUMAB-GNLM
     Indication: Migraine
     Dosage: 1 INJECTION MONTHLY SUBCUTANEOUS
     Route: 058
     Dates: start: 20221001, end: 20221001
  2. XANAX [Suspect]
     Active Substance: ALPRAZOLAM
  3. OMEPRAZOLE [Concomitant]
     Active Substance: OMEPRAZOLE
  4. TIZANIDINE [Concomitant]
     Active Substance: TIZANIDINE
  5. NURTEC ODT [Concomitant]
     Active Substance: RIMEGEPANT SULFATE
  6. VYEPTI [Concomitant]
     Active Substance: EPTINEZUMAB-JJMR
  7. VENLAFAXINE [Concomitant]
     Active Substance: VENLAFAXINE HYDROCHLORIDE
  8. GABAPENTIN [Concomitant]
     Active Substance: GABAPENTIN
  9. Womens One a Day multivitamin [Concomitant]
  10. MELOXICAM [Concomitant]
     Active Substance: MELOXICAM

REACTIONS (4)
  - Psychiatric symptom [None]
  - Suicide attempt [None]
  - Drug abuse [None]
  - Intentional product use issue [None]

NARRATIVE: CASE EVENT DATE: 20221008
